FAERS Safety Report 5907979-7 (Version None)
Quarter: 2008Q4

REPORT INFORMATION
  Report Type: 
  Country: None (occurrence: None)
  Receive Date: 20081003
  Receipt Date: 20080922
  Transmission Date: 20090506
  Serious: Yes (Hospitalization)
  Sender: FDA-Public Use
  Company Number: ES-PFIZER INC-2008079449

PATIENT
  Age: 73 Year
  Sex: Male

DRUGS (2)
  1. LINEZOLID [Suspect]
     Indication: BACTERIAL INFECTION
     Route: 048
     Dates: start: 20080218, end: 20080229
  2. ALLOPURINOL [Suspect]
     Indication: HYPERURICAEMIA
     Route: 048
     Dates: start: 20080205, end: 20080229

REACTIONS (1)
  - PARAPSORIASIS [None]
